FAERS Safety Report 25957144 (Version 1)
Quarter: 2025Q4

REPORT INFORMATION
  Report Type: Report from Study
  Country: US (occurrence: US)
  Receive Date: 20251024
  Receipt Date: 20251024
  Transmission Date: 20260118
  Serious: Yes (Other)
  Sender: TAKEDA
  Company Number: US-TAKEDA-2025TUS091165

PATIENT
  Age: 30 Year
  Sex: Male
  Weight: 50 kg

DRUGS (1)
  1. VEDOLIZUMAB [Suspect]
     Active Substance: VEDOLIZUMAB
     Indication: Crohn^s disease
     Dosage: 300 MILLIGRAM, Q4WEEKS

REACTIONS (6)
  - Pneumatosis intestinalis [Unknown]
  - Pyelonephritis [Unknown]
  - Ileus [Unknown]
  - Retroperitoneal abscess [Unknown]
  - Colonic abscess [Unknown]
  - Urinary tract infection [Unknown]
